FAERS Safety Report 13855773 (Version 5)
Quarter: 2018Q2

REPORT INFORMATION
  Report Type: Spontaneous
  Country: US (occurrence: US)
  Receive Date: 20170810
  Receipt Date: 20180614
  Transmission Date: 20180711
  Serious: Yes (Death)
  Sender: FDA-Public Use
  Company Number: US-VIFOR (INTERNATIONAL) INC.-VIT-2016-08371

PATIENT
  Age: 77 Year
  Sex: Male
  Weight: 68.1 kg

DRUGS (18)
  1. SERTRALINE [Concomitant]
     Active Substance: SERTRALINE HYDROCHLORIDE
  2. TYLENOL [Concomitant]
     Active Substance: ACETAMINOPHEN
     Indication: SCIATICA
  3. FAMOTIDINE. [Concomitant]
     Active Substance: FAMOTIDINE
  4. LIPITOR [Concomitant]
     Active Substance: ATORVASTATIN CALCIUM
  5. PARACETAMOL [Concomitant]
     Active Substance: ACETAMINOPHEN
     Indication: STENOSIS
     Dosage: 5 TO 25 MG
  6. SALBUTAMOL [Concomitant]
     Active Substance: ALBUTEROL
  7. FLOMAX [Concomitant]
     Active Substance: TAMSULOSIN HYDROCHLORIDE
  8. MIDODRINE [Concomitant]
     Active Substance: MIDODRINE
     Indication: BLOOD PRESSURE DECREASED
  9. HYDROCODONE [Concomitant]
     Active Substance: HYDROCODONE
     Indication: SCIATICA
  10. ROPINIROLE. [Concomitant]
     Active Substance: ROPINIROLE
     Dosage: HALF PILL IN MORNING AND WHOLE AT NIGHT.
  11. TYLENOL [Concomitant]
     Active Substance: ACETAMINOPHEN
     Indication: STENOSIS
  12. HYDROCODONE [Concomitant]
     Active Substance: HYDROCODONE
     Indication: STENOSIS
  13. VELTASSA [Suspect]
     Active Substance: PATIROMER
  14. METOPROLOL. [Concomitant]
     Active Substance: METOPROLOL
     Indication: BLOOD PRESSURE INCREASED
     Dosage: HALF TABLET
  15. ACETYLSALICYLIC ACID [Concomitant]
     Active Substance: ASPIRIN
  16. VELTASSA [Suspect]
     Active Substance: PATIROMER
     Indication: HYPERKALAEMIA
     Route: 048
     Dates: start: 20160223, end: 20171226
  17. CLONIDINE. [Concomitant]
     Active Substance: CLONIDINE
  18. PARACETAMOL [Concomitant]
     Active Substance: ACETAMINOPHEN
     Indication: SCIATICA

REACTIONS (9)
  - Restless legs syndrome [Not Recovered/Not Resolved]
  - Oropharyngeal pain [Recovered/Resolved]
  - Flatulence [Recovered/Resolved]
  - Aortic valve calcification [Not Recovered/Not Resolved]
  - Ill-defined disorder [Fatal]
  - Anaemia [Fatal]
  - Diarrhoea [Recovered/Resolved]
  - Rectal prolapse [Unknown]
  - Weight decreased [Recovered/Resolved]

NARRATIVE: CASE EVENT DATE: 20160225
